FAERS Safety Report 16941138 (Version 1)
Quarter: 2019Q4

REPORT INFORMATION
  Report Type: Spontaneous
  Country: FR (occurrence: FR)
  Receive Date: 20191021
  Receipt Date: 20191021
  Transmission Date: 20200122
  Serious: Yes (Other)
  Sender: FDA-Public Use
  Company Number: FR-MYLANLABS-2019M1098625

PATIENT
  Age: 47 Year
  Sex: Female

DRUGS (2)
  1. TRAMADOL SANDOZ [Concomitant]
     Active Substance: TRAMADOL
     Indication: WRIST FRACTURE
     Dosage: UNK
  2. LAMOTRIGIN ?MYLAN? [Suspect]
     Active Substance: LAMOTRIGINE
     Indication: BIPOLAR DISORDER

REACTIONS (7)
  - Vomiting [Unknown]
  - Vertigo [Unknown]
  - Loss of consciousness [Unknown]
  - Syncope [Unknown]
  - Dizziness [Unknown]
  - Somnolence [Unknown]
  - Tremor [Unknown]
